FAERS Safety Report 9321124 (Version 1)
Quarter: 2013Q2

REPORT INFORMATION
  Report Type: Spontaneous
  Country: US (occurrence: None)
  Receive Date: 20130528
  Receipt Date: 20130528
  Transmission Date: 20140414
  Serious: Yes (Hospitalization)
  Sender: FDA-Public Use
  Company Number: AG-2012-0606

PATIENT
  Age: 73 Year
  Sex: Female

DRUGS (2)
  1. CHLORAMBUCIL [Suspect]
  2. TRAMADOL (TRAMADOL) [Suspect]

REACTIONS (6)
  - Dizziness [None]
  - Pyrexia [None]
  - Alopecia [None]
  - White blood cell count decreased [None]
  - Tooth fracture [None]
  - Nail disorder [None]
